FAERS Safety Report 14539751 (Version 3)
Quarter: 2018Q1

REPORT INFORMATION
  Report Type: Report from Study
  Country: GB (occurrence: GB)
  Receive Date: 20180216
  Receipt Date: 20180327
  Transmission Date: 20180509
  Serious: Yes (Hospitalization)
  Sender: FDA-Public Use
  Company Number: PHHO2018GB000873

PATIENT
  Age: 66 Year
  Sex: Male
  Weight: 81 kg

DRUGS (5)
  1. OXALIPLATIN. [Suspect]
     Active Substance: OXALIPLATIN
     Indication: COLORECTAL CANCER
     Dosage: 165 MG, QW2
     Route: 042
     Dates: start: 20171010
  2. BEVACIZUMAB. [Suspect]
     Active Substance: BEVACIZUMAB
     Indication: COLORECTAL CANCER
     Dosage: 400 MG, QW2
     Route: 042
     Dates: start: 20171010
  3. 5-FLUOROURACIL [Suspect]
     Active Substance: FLUOROURACIL
     Indication: COLORECTAL CANCER
     Dosage: 5000 MG, QW2
     Route: 042
     Dates: start: 20171010
  4. LEUCOVORIN. [Suspect]
     Active Substance: LEUCOVORIN
     Indication: COLORECTAL CANCER
     Dosage: 790 MG, QW2
     Route: 042
     Dates: start: 20171010
  5. PDR001 [Suspect]
     Active Substance: INVESTIGATIONAL PRODUCT
     Indication: COLORECTAL CANCER
     Dosage: 400 MG, QW4
     Route: 042
     Dates: start: 20171010

REACTIONS (1)
  - Pyrexia [Recovered/Resolved]

NARRATIVE: CASE EVENT DATE: 20180105
